FAERS Safety Report 5386112-7 (Version None)
Quarter: 2007Q3

REPORT INFORMATION
  Report Type: 
  Country: None (occurrence: None)
  Receive Date: 20070710
  Receipt Date: 20070629
  Transmission Date: 20080115
  Serious: Yes (Other)
  Sender: FDA-Public Use
  Company Number: CHNY2007DE01928

PATIENT
  Age: 50 Year
  Sex: Female
  Weight: 67 kg

DRUGS (1)
  1. FENISTIL PENCIVIR BEI LIPPENHERPES [Suspect]
     Indication: HERPES SIMPLEX
     Dosage: TOPICAL
     Route: 061
     Dates: start: 20070416, end: 20070420

REACTIONS (5)
  - HYPOAESTHESIA [None]
  - HYPOAESTHESIA ORAL [None]
  - LIP DRY [None]
  - SCAR [None]
  - SKIN DISCOMFORT [None]
